FAERS Safety Report 8189970-6 (Version None)
Quarter: 2012Q1

REPORT INFORMATION
  Report Type: 
  Country: None (occurrence: None)
  Receive Date: 20120307
  Receipt Date: 20120223
  Transmission Date: 20120608
  Serious: Yes (Other)
  Sender: FDA-Public Use
  Company Number: US-DX529-2012DX000038

PATIENT
  Age: 43 Year
  Sex: Female
  Weight: 58.97 kg

DRUGS (5)
  1. DANOCRINE [Concomitant]
     Indication: HEREDITARY ANGIOEDEMA
     Dates: start: 19920101, end: 20111224
  2. ZYRTEC [Concomitant]
     Indication: PRODUCT USED FOR UNKNOWN INDICATION
     Route: 048
  3. KALBITOR [Suspect]
     Dates: start: 20120101, end: 20120101
  4. PEPCID [Concomitant]
     Indication: PRODUCT USED FOR UNKNOWN INDICATION
     Route: 048
  5. KALBITOR [Suspect]
     Indication: HEREDITARY ANGIOEDEMA
     Route: 058
     Dates: start: 20120105, end: 20120105

REACTIONS (4)
  - RASH PRURITIC [None]
  - PERIPHERAL COLDNESS [None]
  - HEREDITARY ANGIOEDEMA [None]
  - ANAPHYLACTIC REACTION [None]
